FAERS Safety Report 5674610-8 (Version None)
Quarter: 2008Q1

REPORT INFORMATION
  Report Type: 
  Country: None (occurrence: None)
  Receive Date: 20080319
  Receipt Date: 20080319
  Transmission Date: 20080703
  Serious: No
  Sender: FDA-Public Use
  Company Number: None

PATIENT
  Age: 56 Year
  Sex: Female
  Weight: 90.7194 kg

DRUGS (1)
  1. DILTIAZEM CD   120 MG   ACTA [Suspect]
     Indication: HYPERTENSION
     Dosage: ONE ONCE A DAY  PO
     Route: 048
     Dates: start: 20080227, end: 20080316

REACTIONS (1)
  - RASH GENERALISED [None]
